FAERS Safety Report 7225336-0 (Version None)
Quarter: 2011Q1

REPORT INFORMATION
  Report Type: 
  Country: None (occurrence: None)
  Receive Date: 20110104
  Receipt Date: 20101227
  Transmission Date: 20110831
  Serious: Yes (Other)
  Sender: FDA-Public Use
  Company Number: 005083

PATIENT
  Sex: Female
  Weight: 73 kg

DRUGS (8)
  1. METHOTREXATE [Concomitant]
  2. ACETAMINOPHEN [Concomitant]
  3. AMOXICILLIN [Concomitant]
  4. CIMZIA [Suspect]
     Indication: RHEUMATOID ARTHRITIS
     Dosage: (200 MG 1X/2 WEEKS, STUDY CDP870-027 SUBCUTANEOUS) (400 MG 1X/2 WEEKS SUBCUTANEOUS) (200 MG 1X/2 WEE
     Route: 058
     Dates: start: 20050801, end: 20060718
  5. CIMZIA [Suspect]
     Indication: RHEUMATOID ARTHRITIS
     Dosage: (200 MG 1X/2 WEEKS, STUDY CDP870-027 SUBCUTANEOUS) (400 MG 1X/2 WEEKS SUBCUTANEOUS) (200 MG 1X/2 WEE
     Route: 058
     Dates: start: 20071218, end: 20091229
  6. CIMZIA [Suspect]
     Indication: RHEUMATOID ARTHRITIS
     Dosage: (200 MG 1X/2 WEEKS, STUDY CDP870-027 SUBCUTANEOUS) (400 MG 1X/2 WEEKS SUBCUTANEOUS) (200 MG 1X/2 WEE
     Route: 058
     Dates: start: 20060802, end: 20071205
  7. NIMESULIDE [Concomitant]
  8. PRENISOLON /00016201/ [Concomitant]

REACTIONS (2)
  - BLOOD SODIUM INCREASED [None]
  - RESPIRATORY TRACT INFECTION [None]
